FAERS Safety Report 9859680 (Version 1)
Quarter: 2014Q1

REPORT INFORMATION
  Report Type: Spontaneous
  Country: TN (occurrence: TN)
  Receive Date: 20140131
  Receipt Date: 20140131
  Transmission Date: 20141002
  Serious: Yes (Hospitalization)
  Sender: FDA-Public Use
  Company Number: TN-GLAXOSMITHKLINE-A1058957A

PATIENT
  Age: 7 Year
  Sex: Male

DRUGS (2)
  1. LAMOTRIGINE [Suspect]
     Indication: CONVULSION
     Route: 065
  2. PHENOBARBITAL [Suspect]
     Indication: PRODUCT USED FOR UNKNOWN INDICATION
     Dosage: 50MG PER DAY
     Route: 065

REACTIONS (13)
  - Drug reaction with eosinophilia and systemic symptoms [Recovering/Resolving]
  - Pyrexia [Unknown]
  - Rash generalised [Unknown]
  - Oedema [Unknown]
  - Lymphadenopathy [Unknown]
  - Depressed level of consciousness [Unknown]
  - Convulsion [Unknown]
  - Generalised erythema [Unknown]
  - Eosinophilia [Unknown]
  - Hepatic enzyme increased [Unknown]
  - Skin disorder [Unknown]
  - Skin test positive [Unknown]
  - Condition aggravated [Unknown]
